FAERS Safety Report 6267391-0 (Version None)
Quarter: 2009Q3

REPORT INFORMATION
  Report Type: 
  Country: None (occurrence: None)
  Receive Date: 20090714
  Receipt Date: 20090707
  Transmission Date: 20100115
  Serious: Yes (Other)
  Sender: FDA-Public Use
  Company Number: US-ELI_LILLY_AND_COMPANY-US200907001159

PATIENT
  Sex: Female

DRUGS (5)
  1. HUMULIN N [Suspect]
     Dosage: UNK, UNK
     Dates: start: 19890101, end: 20090501
  2. HUMALOG MIX 75/25 [Suspect]
     Dosage: 15 U, EACH MORNING
     Dates: start: 20090501
  3. HUMALOG MIX 75/25 [Suspect]
     Dosage: 15 U, EACH EVENING
  4. LISINOPRIL [Concomitant]
  5. LANTUS [Concomitant]

REACTIONS (4)
  - ARTHRITIS [None]
  - BLOOD GLUCOSE INCREASED [None]
  - INTRAOCULAR LENS IMPLANT [None]
  - SURGERY [None]
